FAERS Safety Report 16167318 (Version 1)
Quarter: 2019Q2

REPORT INFORMATION
  Report Type: Report from Study
  Country: None (occurrence: US)
  Receive Date: 20190408
  Receipt Date: 20190408
  Transmission Date: 20190711
  Serious: Yes (Hospitalization)
  Sender: FDA-Public Use
  Company Number: US-ABBVIE-19K-163-2676841-00

PATIENT
  Sex: Female

DRUGS (1)
  1. HUMIRA [Suspect]
     Active Substance: ADALIMUMAB
     Indication: RHEUMATOID ARTHRITIS
     Route: 058
     Dates: start: 20180630, end: 201901

REACTIONS (6)
  - Tenderness [Unknown]
  - Pneumonia [Recovered/Resolved]
  - Ulcer haemorrhage [Recovered/Resolved]
  - Gait disturbance [Unknown]
  - Pain [Unknown]
  - Peripheral swelling [Unknown]
